FAERS Safety Report 4578330-2 (Version None)
Quarter: 2005Q1

REPORT INFORMATION
  Report Type: 
  Country: None (occurrence: None)
  Receive Date: 20050211
  Receipt Date: 20050201
  Transmission Date: 20050727
  Serious: Yes (Other)
  Sender: FDA-Public Use
  Company Number: 200510906US

PATIENT
  Sex: Female
  Weight: 56.8 kg

DRUGS (3)
  1. CLOMID [Suspect]
     Indication: OVULATION INDUCTION
     Dates: start: 20021002, end: 20021006
  2. PRENATAL VITAMINS [Concomitant]
     Dosage: DOSE: UNK
     Dates: start: 20020101
  3. VIOXX [Concomitant]
     Dosage: DOSE: UNKNOWN

REACTIONS (2)
  - PREGNANCY [None]
  - SARCOMA [None]
